FAERS Safety Report 21211640 (Version 2)
Quarter: 2022Q4

REPORT INFORMATION
  Report Type: Spontaneous
  Country: PK (occurrence: None)
  Receive Date: 20220815
  Receipt Date: 20221007
  Transmission Date: 20230112
  Serious: Yes (Death)
  Sender: FDA-Public Use
  Company Number: PK-ROCHE-3160094

PATIENT
  Age: 42 Year
  Sex: Male

DRUGS (1)
  1. RITUXIMAB [Suspect]
     Active Substance: RITUXIMAB
     Indication: Vasculitis
     Route: 041
     Dates: start: 20220530

REACTIONS (1)
  - Death [Fatal]

NARRATIVE: CASE EVENT DATE: 20220607
